FAERS Safety Report 7216541-8 (Version None)
Quarter: 2011Q1

REPORT INFORMATION
  Report Type: 
  Country: None (occurrence: None)
  Receive Date: 20110109
  Receipt Date: 20110106
  Transmission Date: 20110831
  Serious: Yes (Other)
  Sender: FDA-Public Use
  Company Number: FR-BRISTOL-MYERS SQUIBB COMPANY-15473895

PATIENT
  Age: 55 Year
  Sex: Female

DRUGS (2)
  1. ADALIMUMAB [Concomitant]
     Dosage: INTERRUPTED + REINTRODUCED
     Dates: start: 20070101
  2. ORENCIA [Suspect]
     Dosage: 1 SINGLE DOSE
     Route: 042

REACTIONS (1)
  - REBOUND PSORIASIS [None]
